FAERS Safety Report 13100520 (Version 1)
Quarter: 2017Q1

REPORT INFORMATION
  Report Type: Spontaneous
  Country: US (occurrence: US)
  Receive Date: 20170109
  Receipt Date: 20170109
  Transmission Date: 20170428
  Serious: Yes (Death)
  Sender: FDA-Public Use
  Company Number: None

PATIENT
  Age: 39 Year
  Sex: Female
  Weight: 81 kg

DRUGS (1)
  1. LATUDA [Suspect]
     Active Substance: LURASIDONE HYDROCHLORIDE
     Indication: DEPRESSION
     Dosage: ?          QUANTITY:1 TABLET(S);?
     Route: 048

REACTIONS (7)
  - Blood cholesterol increased [None]
  - Platelet count decreased [None]
  - Blood triglycerides increased [None]
  - Pyrexia [None]
  - Haemoglobin decreased [None]
  - Hepatic enzyme increased [None]
  - Lymphoma [None]

NARRATIVE: CASE EVENT DATE: 20150117
